FAERS Safety Report 7375580-7 (Version None)
Quarter: 2011Q1

REPORT INFORMATION
  Report Type: 
  Country: None (occurrence: None)
  Receive Date: 20110325
  Receipt Date: 20110323
  Transmission Date: 20110831
  Serious: Yes (Other)
  Sender: FDA-Public Use
  Company Number: A0919757A

PATIENT
  Age: 27 Year
  Sex: Female

DRUGS (1)
  1. ALLI [Suspect]
     Route: 048

REACTIONS (3)
  - STEATORRHOEA [None]
  - FAECES DISCOLOURED [None]
  - HAEMATOCHEZIA [None]
